FAERS Safety Report 4335897-7 (Version None)
Quarter: 2004Q2

REPORT INFORMATION
  Report Type: 
  Country: None (occurrence: None)
  Receive Date: 20040405
  Receipt Date: 20040322
  Transmission Date: 20050107
  Serious: Yes (Death, Hospitalization)
  Sender: FDA-Public Use
  Company Number: 03P-229-0213400-00

PATIENT
  Age: 70 Year
  Sex: Male
  Weight: 56 kg

DRUGS (10)
  1. HUMIRA [Suspect]
     Indication: RHEUMATOID ARTHRITIS
     Dosage: 40 MG, 1 IN  2 WK, SUBCUTANEOUS
     Route: 058
  2. ALENDRONATE SODIUM [Concomitant]
  3. LEKOVIT CA [Concomitant]
  4. AMLODIPINE [Concomitant]
  5. BENDROFLUMETHIAZINE [Concomitant]
  6. FOLIC ACID [Concomitant]
  7. PREDNISOLONE [Concomitant]
  8. METHOTREXATE [Concomitant]
  9. METHYLPREDNISOLONE [Concomitant]
  10. PREDNISOLONE [Concomitant]

REACTIONS (14)
  - ACIDOSIS [None]
  - ASTHENIA [None]
  - ATRIAL FIBRILLATION [None]
  - CANDIDA PNEUMONIA [None]
  - CARDIAC ARREST [None]
  - CYANOSIS [None]
  - HYPOTENSION [None]
  - IMMUNOSUPPRESSION [None]
  - MALAISE [None]
  - RESPIRATORY ARREST [None]
  - SEPSIS [None]
  - SUPRAVENTRICULAR EXTRASYSTOLES [None]
  - TACHYCARDIA [None]
  - TACHYPNOEA [None]
